FAERS Safety Report 16977289 (Version 5)
Quarter: 2019Q4

REPORT INFORMATION
  Report Type: Report from Study
  Country: None (occurrence: BE)
  Receive Date: 20191031
  Receipt Date: 20191213
  Transmission Date: 20200122
  Serious: Yes (Other)
  Sender: FDA-Public Use
  Company Number: BE-ABBVIE-19K-013-2973255-00

PATIENT
  Sex: Female

DRUGS (9)
  1. COVERSYL [Concomitant]
     Active Substance: PERINDOPRIL
     Indication: PRODUCT USED FOR UNKNOWN INDICATION
  2. DUODOPA [Suspect]
     Active Substance: CARBIDOPA\LEVODOPA
     Dosage: MD=2ML, CD=1.4ML/HR DURING 16HRS, ED=0.7ML
     Route: 050
     Dates: start: 20170331, end: 20170809
  3. DUODOPA [Suspect]
     Active Substance: CARBIDOPA\LEVODOPA
     Dosage: MD=2ML, CD=1.4ML/HR DURING 16HRS, ED=0.6ML
     Route: 050
     Dates: start: 20191017, end: 2019
  4. ALDACTAZINE [Concomitant]
     Active Substance: ALTHIAZIDE\SPIRONOLACTONE
     Indication: PRODUCT USED FOR UNKNOWN INDICATION
  5. ATENOLOL. [Concomitant]
     Active Substance: ATENOLOL
     Indication: PRODUCT USED FOR UNKNOWN INDICATION
  6. ELIQUIS [Concomitant]
     Active Substance: APIXABAN
     Indication: PRODUCT USED FOR UNKNOWN INDICATION
  7. BURINEX [Concomitant]
     Active Substance: BUMETANIDE
     Indication: PRODUCT USED FOR UNKNOWN INDICATION
  8. DUODOPA [Suspect]
     Active Substance: CARBIDOPA\LEVODOPA
     Indication: PARKINSON^S DISEASE
     Dosage: UNKNOWN DOSAGES
     Route: 050
     Dates: start: 20170103, end: 20170331
  9. DUODOPA [Suspect]
     Active Substance: CARBIDOPA\LEVODOPA
     Dosage: DOSES CONTINUOUSLY MONITORED AND ADAPTED
     Route: 050
     Dates: start: 20170809, end: 20191017

REACTIONS (10)
  - Off label use [Recovered/Resolved]
  - Stoma site extravasation [Unknown]
  - Stoma site erythema [Not Recovered/Not Resolved]
  - Renal impairment [Unknown]
  - Fistula [Recovering/Resolving]
  - Device alarm issue [Recovered/Resolved]
  - General physical health deterioration [Recovering/Resolving]
  - Stoma complication [Not Recovered/Not Resolved]
  - Pneumonia [Unknown]
  - Medical device site injury [Not Recovered/Not Resolved]

NARRATIVE: CASE EVENT DATE: 20191013
